FAERS Safety Report 7599366-3 (Version None)
Quarter: 2011Q3

REPORT INFORMATION
  Report Type: 
  Country: None (occurrence: None)
  Receive Date: 20110711
  Receipt Date: 20110505
  Transmission Date: 20111222
  Serious: No
  Sender: FDA-Public Use
  Company Number: US-BAYER-2011-041430

PATIENT
  Age: 32 Year
  Sex: Male
  Weight: 95.238 kg

DRUGS (3)
  1. ALEVE (CAPLET) [Suspect]
     Dosage: 440 MG, QD
     Dates: start: 20090101, end: 20110305
  2. DEXILANT [Concomitant]
  3. SUCRALFATE [Concomitant]

REACTIONS (1)
  - DYSPEPSIA [None]
